FAERS Safety Report 15967321 (Version 1)
Quarter: 2019Q1

REPORT INFORMATION
  Report Type: Spontaneous
  Country: US (occurrence: US)
  Receive Date: 20190215
  Receipt Date: 20190215
  Transmission Date: 20190418
  Serious: Yes (Other)
  Sender: FDA-Public Use
  Company Number: None

PATIENT
  Age: 90 Year
  Sex: Female
  Weight: 68.85 kg

DRUGS (13)
  1. FUROSEMIDE. [Concomitant]
     Active Substance: FUROSEMIDE
  2. VERZENIO [Suspect]
     Active Substance: ABEMACICLIB
     Indication: BREAST CANCER
     Route: 048
     Dates: start: 20181218
  3. FEMARA [Concomitant]
     Active Substance: LETROZOLE
  4. GABAPENTIN. [Concomitant]
     Active Substance: GABAPENTIN
  5. LOVASTATIN. [Concomitant]
     Active Substance: LOVASTATIN
  6. XVEGA [Concomitant]
  7. OMEPRAZOLE. [Concomitant]
     Active Substance: OMEPRAZOLE
  8. LEVOTHYROXINE. [Concomitant]
     Active Substance: LEVOTHYROXINE
  9. NIFEDIPINE. [Concomitant]
     Active Substance: NIFEDIPINE
  10. LOSARTAN. [Concomitant]
     Active Substance: LOSARTAN
  11. REPATHA [Concomitant]
     Active Substance: EVOLOCUMAB
  12. VITAMIN B12 [Concomitant]
     Active Substance: CYANOCOBALAMIN
  13. MULTI FOR HIM [Concomitant]

REACTIONS (1)
  - Neutropenia [None]
